FAERS Safety Report 19525319 (Version 1)
Quarter: 2021Q3

REPORT INFORMATION
  Report Type: Report from Study
  Country: US (occurrence: US)
  Receive Date: 20210713
  Receipt Date: 20210713
  Transmission Date: 20211014
  Serious: Yes (Other)
  Sender: FDA-Public Use
  Company Number: US-SA-2021SA226847

PATIENT
  Age: 17 Year
  Sex: Male

DRUGS (2)
  1. EFMOROCTOCOG ALFA [Suspect]
     Active Substance: EFMOROCTOCOG ALFA
     Indication: FACTOR IX DEFICIENCY
     Dosage: 5710 (UNITS NOT REPORTED), Q10D
     Route: 042
     Dates: start: 20140706
  2. EFMOROCTOCOG ALFA [Suspect]
     Active Substance: EFMOROCTOCOG ALFA
     Indication: FACTOR IX DEFICIENCY
     Dosage: 5710 (UNITS NOT REPORTED), Q10D
     Route: 042
     Dates: start: 20140706

REACTIONS (1)
  - Haemorrhage [Recovering/Resolving]

NARRATIVE: CASE EVENT DATE: 20210628
